FAERS Safety Report 14897300 (Version 2)
Quarter: 2018Q2

REPORT INFORMATION
  Report Type: Spontaneous
  Country: US (occurrence: US)
  Receive Date: 20180515
  Receipt Date: 20180608
  Transmission Date: 20180711
  Serious: No
  Sender: FDA-Public Use
  Company Number: US-GLAXOSMITHKLINE-US2018082752

PATIENT
  Sex: Female

DRUGS (6)
  1. ASTELIN [Concomitant]
     Active Substance: AZELASTINE HYDROCHLORIDE
  2. METFORMIN [Concomitant]
     Active Substance: METFORMIN HYDROCHLORIDE
  3. ASPIRIN (BABY) [Concomitant]
     Active Substance: ASPIRIN
  4. ARNUITY ELLIPTA [Suspect]
     Active Substance: FLUTICASONE FUROATE
     Indication: ASTHMA
     Dosage: 1 PUFF(S), QD
     Route: 055
     Dates: start: 20180409, end: 20180430
  5. ALBUTEROL. [Concomitant]
     Active Substance: ALBUTEROL
  6. FLONASE [Concomitant]
     Active Substance: FLUTICASONE PROPIONATE

REACTIONS (4)
  - Agitation [Not Recovered/Not Resolved]
  - Drug effect decreased [Unknown]
  - Intentional dose omission [Unknown]
  - Anxiety [Not Recovered/Not Resolved]
